FAERS Safety Report 23722261 (Version 2)
Quarter: 2024Q2

REPORT INFORMATION
  Report Type: Spontaneous
  Country: GB (occurrence: GB)
  Receive Date: 20240409
  Receipt Date: 20240420
  Transmission Date: 20240716
  Serious: Yes (Other)
  Sender: FDA-Public Use
  Company Number: None

PATIENT
  Age: 10 Year
  Sex: Male
  Weight: 20 kg

DRUGS (11)
  1. MONTELUKAST [Suspect]
     Active Substance: MONTELUKAST SODIUM
     Indication: Product used for unknown indication
     Dosage: UNKNOWN
     Route: 065
  2. MONTELUKAST [Suspect]
     Active Substance: MONTELUKAST SODIUM
     Indication: Asthma
     Route: 065
     Dates: start: 201507, end: 201604
  3. AMOXICILLIN [Concomitant]
     Active Substance: AMOXICILLIN
     Indication: Asthma
     Dosage: UNKNOWN
     Route: 065
  4. AZITHROMYCIN [Concomitant]
     Active Substance: AZITHROMYCIN
     Indication: Asthma
     Dosage: AUGUST 2016 - MAY 2017?SEPTEMBER 2017 - MAY 2018?SEPTEMBER 2018 - MAY 2019
     Route: 065
     Dates: start: 201608, end: 201905
  5. CLARITHROMYCIN [Concomitant]
     Active Substance: CLARITHROMYCIN
     Indication: Asthma
     Dosage: USUALLY FOR 2 WEEKS
     Route: 065
  6. BECLOMETHASONE DIPROPIONATE [Concomitant]
     Active Substance: BECLOMETHASONE DIPROPIONATE
     Indication: Asthma
     Dosage: AUGUST 2016 - APRIL 2017?OCTOBER 2017 - AUGUST 2019
     Route: 065
     Dates: start: 201608, end: 201908
  7. AMOXICILLIN\CLAVULANATE POTASSIUM [Concomitant]
     Active Substance: AMOXICILLIN\CLAVULANATE POTASSIUM
     Indication: Asthma
     Dosage: USUALLY FOR 2 WEEKS
     Route: 065
  8. ERYTHROMYCIN [Concomitant]
     Active Substance: ERYTHROMYCIN
     Indication: Asthma
     Dosage: USUALLY FOR 2 WEEKS
     Route: 065
  9. PREDNISOLONE [Concomitant]
     Active Substance: PREDNISOLONE
     Indication: Asthma
     Dosage: COURSES OF BETWEEN 2 AND 5 DAYS. SEVERAL COURSES OVER HIS LIFETIME DUE TO SEVERE ASTHMA FLARE UPS
     Route: 065
  10. ALBUTEROL [Concomitant]
     Active Substance: ALBUTEROL
     Indication: Asthma
     Dosage: AS REQUIRED
     Route: 065
  11. SERETIDE [Concomitant]
     Active Substance: FLUTICASONE PROPIONATE\SALMETEROL XINAFOATE
     Indication: Asthma
     Dosage: APRIL 2017 - OCTOBER 2017 ?AUGUST 2019 - PRESENT
     Route: 065
     Dates: start: 201704

REACTIONS (20)
  - Medication error [Unknown]
  - Short stature [Not Recovered/Not Resolved]
  - Growth failure [Not Recovered/Not Resolved]
  - Head banging [Unknown]
  - Aggression [Unknown]
  - Anger [Unknown]
  - Retching [Unknown]
  - Decreased appetite [Unknown]
  - Food aversion [Unknown]
  - Anxiety [Unknown]
  - Fear [Unknown]
  - Panic attack [Unknown]
  - Depression [Unknown]
  - Suicidal ideation [Unknown]
  - Self-destructive behaviour [Unknown]
  - Dermatillomania [Unknown]
  - Tic [Unknown]
  - Malabsorption [Unknown]
  - Weight decreased [Unknown]
  - Withdrawal syndrome [Unknown]
